FAERS Safety Report 5873512-1 (Version None)
Quarter: 2008Q3

REPORT INFORMATION
  Report Type: 
  Country: None (occurrence: None)
  Receive Date: 20080829
  Receipt Date: 20070905
  Transmission Date: 20090109
  Serious: Yes (Other)
  Sender: FDA-Public Use
  Company Number: 2007-00842FE

PATIENT
  Age: 9 Year
  Sex: Male

DRUGS (1)
  1. ZOMACTON (ZOMACTON) (SOMATROPIN) [Suspect]
     Indication: BLOOD GROWTH HORMONE DECREASED

REACTIONS (1)
  - BENIGN INTRACRANIAL HYPERTENSION [None]
